FAERS Safety Report 25936270 (Version 1)
Quarter: 2025Q4

REPORT INFORMATION
  Report Type: Spontaneous
  Country: IN (occurrence: IN)
  Receive Date: 20251017
  Receipt Date: 20251017
  Transmission Date: 20260118
  Serious: Yes (Hospitalization)
  Sender: UNIQUE PHARMACEUTICAL LABORATORIES
  Company Number: IN-UNIQUE PHARMACEUTICAL LABORATORIES-20251000066

PATIENT

DRUGS (9)
  1. FLUCONAZOLE [Interacting]
     Active Substance: FLUCONAZOLE
     Indication: Oral candidiasis
     Dosage: 100 MILLIGRAM, QD
     Route: 048
     Dates: start: 20250506
  2. TACROLIMUS [Interacting]
     Active Substance: TACROLIMUS
     Indication: Product used for unknown indication
     Dosage: 1.75 MILLIGRAM, BID
     Route: 065
     Dates: start: 20250415
  3. TACROLIMUS [Interacting]
     Active Substance: TACROLIMUS
     Dosage: 1 MILLIGRAM, BID
     Route: 065
     Dates: start: 20250514, end: 20250520
  4. TACROLIMUS [Interacting]
     Active Substance: TACROLIMUS
     Dosage: 0.25 MILLIGRAM, BID
     Route: 065
     Dates: start: 20250529
  5. ATAZANAVIR SULFATE\RITONAVIR [Interacting]
     Active Substance: ATAZANAVIR SULFATE\RITONAVIR
     Indication: HIV infection
     Dosage: UNK, UNKNOWN
     Route: 065
  6. ATAZANAVIR SULFATE\RITONAVIR [Interacting]
     Active Substance: ATAZANAVIR SULFATE\RITONAVIR
     Indication: Antiretroviral therapy
  7. DOLUTEGRAVIR [Concomitant]
     Active Substance: DOLUTEGRAVIR
     Indication: Immunosuppressant drug therapy
  8. MYCOPHENOLIC ACID [Concomitant]
     Active Substance: MYCOPHENOLIC ACID
     Indication: Product used for unknown indication
     Dosage: UNK UNK, UNKNOWN
     Route: 065
  9. PREDNISOLONE [Concomitant]
     Active Substance: PREDNISOLONE
     Indication: Product used for unknown indication
     Dosage: UNK, UNKNOWN
     Route: 065

REACTIONS (2)
  - Toxicity to various agents [Recovered/Resolved]
  - Drug interaction [Recovered/Resolved]
